FAERS Safety Report 9107489 (Version 1)
Quarter: 2013Q1

REPORT INFORMATION
  Report Type: Spontaneous
  Country: JP (occurrence: JP)
  Receive Date: 20130221
  Receipt Date: 20130221
  Transmission Date: 20140127
  Serious: Yes (Death)
  Sender: FDA-Public Use
  Company Number: JP-MERCK-2011SP029548

PATIENT
  Age: 78 Year
  Sex: Female

DRUGS (4)
  1. REFLEX [Suspect]
     Indication: DEPRESSION
     Dosage: UNK
     Route: 048
     Dates: start: 20110603, end: 20110612
  2. REFLEX [Suspect]
     Indication: INSOMNIA
     Dosage: 30 MG, QD
     Route: 048
     Dates: start: 20110613, end: 20110615
  3. MAGNESIUM OXIDE [Concomitant]
     Indication: CONSTIPATION
     Dosage: 500 MG, QD
     Route: 048
     Dates: start: 20080207, end: 20110615
  4. BENET [Concomitant]
     Indication: OSTEOPOROSIS
     Dosage: 17.5 MG, UNK
     Dates: start: 20080207

REACTIONS (1)
  - Completed suicide [Fatal]
